FAERS Safety Report 25655763 (Version 1)
Quarter: 2025Q3

REPORT INFORMATION
  Report Type: Report from Study
  Country: IN (occurrence: IN)
  Receive Date: 20250807
  Receipt Date: 20250807
  Transmission Date: 20251020
  Serious: Yes (Other)
  Sender: DAIICHI
  Company Number: IN-AstraZeneca-CH-00918974A

PATIENT
  Sex: Male

DRUGS (1)
  1. ENHERTU [Suspect]
     Active Substance: FAM-TRASTUZUMAB DERUXTECAN-NXKI
     Indication: Oesophageal adenocarcinoma
     Dosage: 400 MG, ONCE EVERY 3 WK
     Route: 041

REACTIONS (4)
  - Immunodeficiency [Unknown]
  - Back pain [Unknown]
  - Bone pain [Unknown]
  - Haemoglobin decreased [Unknown]
